FAERS Safety Report 6970171-1 (Version None)
Quarter: 2010Q3

REPORT INFORMATION
  Report Type: 
  Country: None (occurrence: None)
  Receive Date: 20100908
  Receipt Date: 20100830
  Transmission Date: 20110219
  Serious: Yes (Life-Threatening, Hospitalization, Other)
  Sender: FDA-Public Use
  Company Number: NL-KINGPHARMUSA00001-K201001099

PATIENT
  Age: 23 Year
  Sex: Female

DRUGS (2)
  1. LEVOXYL [Suspect]
     Dosage: 25 MG, SINGLE
     Route: 048
     Dates: start: 20081017, end: 20081017
  2. LEVOXYL [Suspect]
     Dosage: 0.15 MG, QD
     Route: 048

REACTIONS (9)
  - COAGULATION FACTOR IX LEVEL INCREASED [None]
  - COAGULATION FACTOR VIII LEVEL INCREASED [None]
  - COAGULATION FACTOR X LEVEL INCREASED [None]
  - COAGULOPATHY [None]
  - INTENTIONAL OVERDOSE [None]
  - PLASMINOGEN ACTIVATOR INHIBITOR INCREASED [None]
  - SUICIDE ATTEMPT [None]
  - VON WILLEBRAND'S FACTOR ACTIVITY INCREASED [None]
  - VON WILLEBRAND'S FACTOR ANTIGEN INCREASED [None]
